FAERS Safety Report 9362024 (Version 1)
Quarter: 2013Q2

REPORT INFORMATION
  Report Type: Spontaneous
  Country: US (occurrence: US)
  Receive Date: 20130621
  Receipt Date: 20130621
  Transmission Date: 20140414
  Serious: Yes (Other)
  Sender: FDA-Public Use
  Company Number: CHPA2013US010072

PATIENT
  Age: 36 Year
  Sex: Male

DRUGS (4)
  1. EXCEDRIN EXTRA STRENGTH [Suspect]
     Indication: NECK PAIN
     Dosage: 2 DF, QD
     Route: 048
  2. EXCEDRIN EXTRA STRENGTH [Suspect]
     Indication: MUSCULOSKELETAL PAIN
  3. EXCEDRIN EXTRA STRENGTH [Suspect]
     Indication: NECK PAIN
     Dosage: 1-4 DF, PRN
     Route: 048
  4. EXCEDRIN EXTRA STRENGTH [Suspect]
     Indication: MUSCULOSKELETAL PAIN

REACTIONS (3)
  - Gastric haemorrhage [Unknown]
  - Abdominal discomfort [Unknown]
  - Incorrect drug administration duration [Unknown]
